FAERS Safety Report 16440205 (Version 1)
Quarter: 2019Q2

REPORT INFORMATION
  Report Type: Spontaneous
  Country: EG (occurrence: EG)
  Receive Date: 20190617
  Receipt Date: 20190617
  Transmission Date: 20190711
  Serious: Yes (Hospitalization)
  Sender: FDA-Public Use
  Company Number: EG-PFIZER INC-2019252058

PATIENT
  Sex: Male

DRUGS (4)
  1. TABINE [Suspect]
     Active Substance: CYTARABINE
     Indication: LYMPHOMA
     Dosage: 3200 MG,(3200 MG WITH DOSE OF 3200 MG ON)
     Route: 042
  2. SOLU-MEDROL [Suspect]
     Active Substance: METHYLPREDNISOLONE SODIUM SUCCINATE
     Indication: LYMPHOMA
     Dosage: 500 MG, CYCLIC
     Route: 042
  3. ETOPUL [Suspect]
     Active Substance: ETOPOSIDE
     Indication: LYMPHOMA
     Dosage: 100 MG, UNK
  4. CYTOPLATIN-50 AQUEOUS [Suspect]
     Active Substance: CISPLATIN
     Indication: LYMPHOMA
     Dosage: 40 MG, UNK

REACTIONS (3)
  - Diarrhoea [Recovered/Resolved]
  - Proctalgia [Recovered/Resolved]
  - Rectal fissure [Recovered/Resolved]
